FAERS Safety Report 4944266-8 (Version None)
Quarter: 2006Q1

REPORT INFORMATION
  Report Type: 
  Country: None (occurrence: None)
  Receive Date: 20060315
  Receipt Date: 20060214
  Transmission Date: 20060701
  Serious: Yes (Other)
  Sender: FDA-Public Use
  Company Number: 2006AP00718

PATIENT
  Age: 24457 Day
  Sex: Male

DRUGS (7)
  1. SEROQUEL [Suspect]
     Indication: DELIRIUM
     Dosage: 25 MG TO 100 MG
     Route: 048
     Dates: start: 20050304, end: 20050314
  2. DOGMATYL [Suspect]
     Indication: BIPOLAR I DISORDER
     Dates: start: 19910101, end: 20050225
  3. ZOPICOOL [Concomitant]
     Indication: BIPOLAR I DISORDER
     Route: 048
     Dates: start: 19910101
  4. AMLODIN [Concomitant]
     Indication: HYPERTROPHIC CARDIOMYOPATHY
     Route: 048
  5. DIOVAN [Concomitant]
     Indication: HYPERTROPHIC CARDIOMYOPATHY
     Route: 048
  6. GOODMIN [Concomitant]
     Indication: BIPOLAR I DISORDER
     Route: 048
     Dates: start: 20050227
  7. DESYREL [Concomitant]
     Indication: BIPOLAR I DISORDER
     Route: 048
     Dates: start: 20050303, end: 20050304

REACTIONS (3)
  - DELIRIUM [None]
  - MUSCLE RIGIDITY [None]
  - PYREXIA [None]
